FAERS Safety Report 26016140 (Version 1)
Quarter: 2025Q4

REPORT INFORMATION
  Report Type: Report from Study
  Country: US (occurrence: US)
  Receive Date: 20251110
  Receipt Date: 20251110
  Transmission Date: 20260119
  Serious: Yes (Other)
  Sender: ABBVIE
  Company Number: US-ABBVIE-6012584

PATIENT
  Age: 71 Year
  Sex: Female

DRUGS (2)
  1. SKYRIZI [Suspect]
     Active Substance: RISANKIZUMAB-RZAA
     Indication: Psoriasis
     Route: 058
     Dates: start: 20200706
  2. SKYRIZI [Suspect]
     Active Substance: RISANKIZUMAB-RZAA
     Dosage: DISCONTINUED IN 2020
     Route: 058
     Dates: start: 20200609

REACTIONS (7)
  - Hip arthroplasty [Not Recovered/Not Resolved]
  - Back disorder [Not Recovered/Not Resolved]
  - Hip arthroplasty [Not Recovered/Not Resolved]
  - Balance disorder [Not Recovered/Not Resolved]
  - Spondylitis [Not Recovered/Not Resolved]
  - Neuropathy peripheral [Not Recovered/Not Resolved]
  - Road traffic accident [Not Recovered/Not Resolved]

NARRATIVE: CASE EVENT DATE: 20230101
